FAERS Safety Report 10459491 (Version 2)
Quarter: 2014Q4

REPORT INFORMATION
  Report Type: Spontaneous
  Country: EC (occurrence: EC)
  Receive Date: 20140917
  Receipt Date: 20141001
  Transmission Date: 20150528
  Serious: Yes (Other)
  Sender: FDA-Public Use
  Company Number: PHHY2014EC120563

PATIENT
  Sex: Male

DRUGS (2)
  1. DIOVAN [Suspect]
     Active Substance: VALSARTAN
     Dosage: 160MG, ONE DAILY
     Route: 048
     Dates: start: 201401, end: 20140831
  2. DIOVAN [Suspect]
     Active Substance: VALSARTAN
     Indication: HYPERTENSION
     Dosage: 80 MG, ONE DAILY
     Route: 048
     Dates: start: 201311, end: 201312

REACTIONS (5)
  - Thrombocytopenic purpura [Recovering/Resolving]
  - Swelling face [Unknown]
  - Insomnia [Unknown]
  - Platelet count decreased [Unknown]
  - Dizziness [Unknown]

NARRATIVE: CASE EVENT DATE: 201405
